FAERS Safety Report 8307417-3 (Version None)
Quarter: 2012Q2

REPORT INFORMATION
  Report Type: 
  Country: None (occurrence: None)
  Receive Date: 20120424
  Receipt Date: 20120417
  Transmission Date: 20120825
  Serious: Yes (Disabling, Other)
  Sender: FDA-Public Use
  Company Number: FR-PFIZER INC-2012094779

PATIENT
  Age: 64 Year
  Sex: Female

DRUGS (7)
  1. SUTENT [Suspect]
     Dosage: 50 MG, PER DAY
     Dates: start: 20110601
  2. FERROUS SULFATE TAB [Concomitant]
     Dosage: UNK
  3. LASIX [Concomitant]
     Dosage: UNK
  4. SUTENT [Suspect]
     Indication: RENAL CANCER
     Dosage: UNK
     Dates: start: 20090601
  5. LEVOTHYROXINE SODIUM [Concomitant]
     Dosage: UNK
  6. AMLODIPINE BESYLATE [Concomitant]
     Dosage: UNK
  7. VITAMIN D [Concomitant]
     Dosage: UNK

REACTIONS (2)
  - FATIGUE [None]
  - NEURALGIA [None]
